FAERS Safety Report 23081982 (Version 1)
Quarter: 2023Q4

REPORT INFORMATION
  Report Type: Spontaneous
  Country: HU (occurrence: HU)
  Receive Date: 20231019
  Receipt Date: 20231019
  Transmission Date: 20240110
  Serious: Yes (Other)
  Sender: FDA-Public Use
  Company Number: HU-PFIZER INC-PV202300170256

PATIENT
  Age: 34 Year
  Sex: Female

DRUGS (3)
  1. AVIBACTAM SODIUM\CEFTAZIDIME [Suspect]
     Active Substance: AVIBACTAM SODIUM\CEFTAZIDIME
     Indication: Acinetobacter infection
     Route: 042
  2. COLISTIN [Concomitant]
     Active Substance: COLISTIN
     Indication: Acinetobacter infection
     Route: 065
  3. AZTREONAM [Concomitant]
     Active Substance: AZTREONAM
     Indication: Product used for unknown indication
     Route: 065

REACTIONS (3)
  - Device related thrombosis [Unknown]
  - Disease progression [Unknown]
  - Cardiomyopathy [Unknown]
